FAERS Safety Report 7405699-3 (Version None)
Quarter: 2011Q2

REPORT INFORMATION
  Report Type: 
  Country: None (occurrence: None)
  Receive Date: 20110406
  Receipt Date: 20110406
  Transmission Date: 20111010
  Serious: Yes (Other)
  Sender: FDA-Public Use
  Company Number: None

PATIENT
  Age: 35 Year
  Sex: Female
  Weight: 77.1115 kg

DRUGS (1)
  1. SERTRALINE HYDROCHLORIDE [Suspect]
     Indication: OBSESSIVE-COMPULSIVE DISORDER
     Dosage: ONE AND A HALF DAILY PO
     Route: 048
     Dates: start: 20101120, end: 20110404

REACTIONS (5)
  - PRODUCT SUBSTITUTION ISSUE [None]
  - OBSESSIVE-COMPULSIVE DISORDER [None]
  - DISEASE RECURRENCE [None]
  - DRUG LEVEL DECREASED [None]
  - ANXIETY [None]
